FAERS Safety Report 8989294 (Version 3)
Quarter: 2013Q1

REPORT INFORMATION
  Report Type: Spontaneous
  Country: DE (occurrence: DE)
  Receive Date: 20121228
  Receipt Date: 20130107
  Transmission Date: 20140127
  Serious: Yes (Other)
  Sender: FDA-Public Use
  Company Number: DE-RANBAXY-2012RR-62565

PATIENT
  Age: 61 Year
  Sex: Female
  Weight: 60 kg

DRUGS (2)
  1. CEFPO [Suspect]
     Indication: BRONCHITIS
     Dosage: 2 X1/ DAY
     Route: 048
     Dates: start: 20121113, end: 20121120
  2. CEFPO [Suspect]
     Indication: OROPHARYNGEAL PAIN

REACTIONS (6)
  - Clostridium difficile infection [Recovered/Resolved]
  - Diarrhoea haemorrhagic [Recovered/Resolved]
  - Abdominal pain upper [Recovering/Resolving]
  - Nausea [Recovering/Resolving]
  - Vomiting [Recovering/Resolving]
  - Arthralgia [Recovering/Resolving]
